FAERS Safety Report 25413108 (Version 1)
Quarter: 2025Q2

REPORT INFORMATION
  Report Type: Spontaneous
  Country: US (occurrence: US)
  Receive Date: 20250609
  Receipt Date: 20250609
  Transmission Date: 20250717
  Serious: Yes (Other)
  Sender: GLAND PHARMA LTD
  Company Number: US-GLANDPHARMA-US-2025GLNLIT01340

PATIENT
  Age: 7 Decade
  Sex: Male

DRUGS (4)
  1. POSACONAZOLE [Suspect]
     Active Substance: POSACONAZOLE
     Indication: Prophylaxis
     Route: 065
  2. PACRITINIB [Suspect]
     Active Substance: PACRITINIB
     Indication: Product used for unknown indication
     Route: 065
  3. PACRITINIB [Suspect]
     Active Substance: PACRITINIB
     Route: 065
  4. PACRITINIB [Suspect]
     Active Substance: PACRITINIB
     Route: 065

REACTIONS (5)
  - Neutropenia [Unknown]
  - Dyspnoea [Unknown]
  - Cough [Unknown]
  - Oedema peripheral [Unknown]
  - Drug interaction [Unknown]
